FAERS Safety Report 18981164 (Version 1)
Quarter: 2021Q1

REPORT INFORMATION
  Report Type: Spontaneous
  Country: US (occurrence: US)
  Receive Date: 20210307
  Receipt Date: 20210307
  Transmission Date: 20210420
  Serious: Yes (Disabling)
  Sender: FDA-Public Use
  Company Number: None

PATIENT
  Age: 19 Year
  Sex: Female
  Weight: 121.56 kg

DRUGS (5)
  1. BUSPIRINE [Concomitant]
  2. METFORMIN [Concomitant]
     Active Substance: METFORMIN HYDROCHLORIDE
  3. MELATONIN [Concomitant]
     Active Substance: MELATONIN
  4. PANTOPRAZOLE [Concomitant]
     Active Substance: PANTOPRAZOLE
  5. NEXPLANON [Suspect]
     Active Substance: ETONOGESTREL

REACTIONS (7)
  - Acne [None]
  - Aggression [None]
  - Feeling abnormal [None]
  - Polycystic ovaries [None]
  - Crying [None]
  - Weight increased [None]
  - Glucose tolerance impaired [None]

NARRATIVE: CASE EVENT DATE: 20201113
